FAERS Safety Report 6932204-8 (Version None)
Quarter: 2010Q3

REPORT INFORMATION
  Report Type: 
  Country: None (occurrence: None)
  Receive Date: 20100819
  Receipt Date: 20100816
  Transmission Date: 20110219
  Serious: Yes (Life-Threatening, Hospitalization)
  Sender: FDA-Public Use
  Company Number: DE-ROCHE-650604

PATIENT
  Sex: Male
  Weight: 86 kg

DRUGS (7)
  1. MYCOPHENOLATE MOFETIL [Suspect]
     Indication: RENAL TRANSPLANT
     Route: 048
     Dates: start: 20081230
  2. ANTI-THYMOCYTE GLOBULIN NOS [Suspect]
     Indication: RENAL TRANSPLANT
     Dosage: FORM: INFUSION.
     Route: 042
     Dates: start: 20081230
  3. TACROLIMUS [Suspect]
     Indication: RENAL TRANSPLANT
     Route: 048
     Dates: start: 20081230
  4. TACROLIMUS [Suspect]
     Route: 048
     Dates: start: 20090106, end: 20090107
  5. TACROLIMUS [Suspect]
     Route: 048
  6. PREDNISOLONE [Suspect]
     Indication: RENAL TRANSPLANT
     Route: 065
     Dates: start: 20081230
  7. PREDNISOLONE [Suspect]
     Route: 065
     Dates: start: 20090103

REACTIONS (2)
  - LARGE INTESTINE PERFORATION [None]
  - PERITONITIS [None]
